FAERS Safety Report 9353963 (Version 1)
Quarter: 2013Q2

REPORT INFORMATION
  Report Type: Report from Study
  Country: VE (occurrence: VE)
  Receive Date: 20130618
  Receipt Date: 20130618
  Transmission Date: 20140414
  Serious: Yes (Other)
  Sender: FDA-Public Use
  Company Number: VE-ABBOTT-13P-178-1104279-00

PATIENT
  Age: 53 Year
  Sex: Female
  Weight: 52 kg

DRUGS (2)
  1. HUMIRA [Suspect]
     Indication: RHEUMATOID ARTHRITIS
     Route: 058
     Dates: start: 20110310, end: 201205
  2. PREDNISONA [Concomitant]
     Indication: RHEUMATOID ARTHRITIS
     Route: 048
     Dates: start: 2012

REACTIONS (2)
  - Tuberculin test positive [Recovering/Resolving]
  - Nephrolithiasis [Recovered/Resolved]
